FAERS Safety Report 13916846 (Version 1)
Quarter: 2017Q3

REPORT INFORMATION
  Report Type: Spontaneous
  Country: US (occurrence: US)
  Receive Date: 20170829
  Receipt Date: 20170829
  Transmission Date: 20171127
  Serious: Yes (Other)
  Sender: FDA-Public Use
  Company Number: US-JNJFOC-20170820353

PATIENT
  Age: 7 Decade
  Sex: Male

DRUGS (1)
  1. TOPAMAX [Suspect]
     Active Substance: TOPIRAMATE
     Indication: MIGRAINE
     Dosage: 100 MG IN THE MORNING AND 50 MG AT NIGHT
     Route: 048

REACTIONS (3)
  - Migraine [Recovering/Resolving]
  - Drug dose omission [Unknown]
  - Loss of consciousness [Unknown]
